FAERS Safety Report 5731909-4 (Version None)
Quarter: 2008Q2

REPORT INFORMATION
  Report Type: 
  Country: None (occurrence: None)
  Receive Date: 20080506
  Receipt Date: 20080506
  Transmission Date: 20081010
  Serious: Yes (Life-Threatening)
  Sender: FDA-Public Use
  Company Number: None

PATIENT
  Age: 46 Year
  Sex: Female

DRUGS (1)
  1. SEPTOCAINE [Suspect]
     Dates: start: 20080418, end: 20080418

REACTIONS (11)
  - BURNING MOUTH SYNDROME [None]
  - CANDIDIASIS [None]
  - DIZZINESS [None]
  - FACIAL PAIN [None]
  - GAIT DISTURBANCE [None]
  - HEADACHE [None]
  - INSOMNIA [None]
  - MALAISE [None]
  - POISONING [None]
  - SWELLING FACE [None]
  - TONGUE DISCOLOURATION [None]
